FAERS Safety Report 14861465 (Version 1)
Quarter: 2018Q2

REPORT INFORMATION
  Report Type: Spontaneous
  Country: CN (occurrence: CN)
  Receive Date: 20180508
  Receipt Date: 20180508
  Transmission Date: 20180711
  Serious: Yes (Other)
  Sender: FDA-Public Use
  Company Number: CN-OTSUKA-2018_011214

PATIENT

DRUGS (2)
  1. TOLVAPTAN TABLETS [Suspect]
     Active Substance: TOLVAPTAN
     Indication: HEPATIC CIRRHOSIS
     Dosage: 15 MG, QD
     Route: 048
  2. TOLVAPTAN TABLETS [Suspect]
     Active Substance: TOLVAPTAN
     Indication: ASCITES

REACTIONS (1)
  - Hepatic encephalopathy [Unknown]
